FAERS Safety Report 23314565 (Version 2)
Quarter: 2025Q4

REPORT INFORMATION
  Report Type: Spontaneous
  Country: EU (occurrence: EU)
  Receive Date: 20231219
  Receipt Date: 20251104
  Transmission Date: 20260118
  Serious: Yes (Hospitalization)
  Sender: BAUSCH AND LOMB
  Company Number: EU-Stemline Therapeutics, Inc.-2023ST004867

PATIENT
  Age: 83 Year
  Sex: Male

DRUGS (13)
  1. DEXAMETHASONE [Suspect]
     Active Substance: DEXAMETHASONE
     Indication: Plasma cell myeloma
     Dosage: REDUCED TO 10MG
     Route: 065
  2. LENALIDOMIDE [Suspect]
     Active Substance: LENALIDOMIDE
     Indication: Plasma cell myeloma
     Route: 065
  3. SELINEXOR [Suspect]
     Active Substance: SELINEXOR
     Indication: Plasma cell myeloma
     Dosage: CYCLE1, DAY 3
     Route: 065
     Dates: start: 20231128, end: 20231128
  4. SELINEXOR [Suspect]
     Active Substance: SELINEXOR
     Dosage: DOSE REINTRODUCED
     Route: 065
  5. BORTEZOMIB [Suspect]
     Active Substance: BORTEZOMIB
     Indication: Plasma cell myeloma
     Route: 065
  6. LERCANIDIPINE HYDROCHLORIDE [Concomitant]
     Active Substance: LERCANIDIPINE HYDROCHLORIDE
     Indication: Hypertension
     Dosage: 10 MG ? 7, PO
     Dates: start: 2015
  7. LIPITOR [Concomitant]
     Active Substance: ATORVASTATIN CALCIUM
     Indication: Hypercholesterolaemia
     Dosage: 40 MG ? 7, PO
     Dates: start: 2010
  8. ASPIRIN\MAGNESIUM OXIDE [Concomitant]
     Active Substance: ASPIRIN\MAGNESIUM OXIDE
     Indication: Prophylaxis
     Dosage: 75 MG ? 7, PO
     Dates: start: 20231128
  9. VALTREX [Concomitant]
     Active Substance: VALACYCLOVIR HYDROCHLORIDE
     Indication: Prophylaxis
     Dosage: 250 MG ? 2, PO
  10. MELATONIN [Concomitant]
     Active Substance: MELATONIN
     Indication: Product used for unknown indication
     Dosage: 7 MG ? 7
     Dates: start: 2021
  11. METRONIDAZOLE [Concomitant]
     Active Substance: METRONIDAZOLE
     Dosage: 400 MG ? 3, PO
     Dates: start: 20231206, end: 20231219
  12. CEFOTAXIME [Concomitant]
     Active Substance: CEFOTAXIME SODIUM
     Indication: Product used for unknown indication
     Dates: start: 20231209
  13. BACTRIM [Concomitant]
     Active Substance: SULFAMETHOXAZOLE\TRIMETHOPRIM
     Indication: Product used for unknown indication
     Dosage: PO

REACTIONS (1)
  - Colitis [Recovered/Resolved]

NARRATIVE: CASE EVENT DATE: 20231201
